FAERS Safety Report 4963559-1 (Version None)
Quarter: 2006Q1

REPORT INFORMATION
  Report Type: 
  Country: None (occurrence: None)
  Receive Date: 20060201
  Receipt Date: 20051112
  Transmission Date: 20060701
  Serious: No
  Sender: FDA-Public Use
  Company Number: 2005PV004505

PATIENT
  Age: 59 Year
  Sex: Female
  Weight: 128.368 kg

DRUGS (7)
  1. BYETTA [Suspect]
     Indication: DIABETES MELLITUS NON-INSULIN-DEPENDENT
     Dosage: 5 MCG;BID;SC
     Route: 058
     Dates: start: 20051109
  2. FLU VACCINATION [Suspect]
     Indication: INFLUENZA IMMUNISATION
     Dates: start: 20051108
  3. TRICOR [Concomitant]
  4. AVANDIA [Concomitant]
  5. POTASSIUM HCL [Concomitant]
  6. LASIX [Concomitant]
  7. PREVACOL [Concomitant]

REACTIONS (7)
  - DECREASED APPETITE [None]
  - INFLUENZA LIKE ILLNESS [None]
  - PHARYNGOLARYNGEAL PAIN [None]
  - PRODUCTIVE COUGH [None]
  - PYREXIA [None]
  - RESPIRATORY TRACT CONGESTION [None]
  - WEIGHT DECREASED [None]
